FAERS Safety Report 10199051 (Version 1)
Quarter: 2014Q2

REPORT INFORMATION
  Report Type: Spontaneous
  Country: CH (occurrence: CH)
  Receive Date: 20140527
  Receipt Date: 20140527
  Transmission Date: 20141212
  Serious: Yes (Other)
  Sender: FDA-Public Use
  Company Number: CH-ELI_LILLY_AND_COMPANY-CH201405007198

PATIENT
  Sex: 0

DRUGS (2)
  1. CYMBALTA [Suspect]
     Indication: DEPRESSION
     Dosage: 60 MG, QD
     Route: 064
     Dates: start: 2010, end: 201210
  2. CYMBALTA [Suspect]
     Dosage: 30 MG, QD
     Route: 064
     Dates: start: 20130201

REACTIONS (2)
  - Exposure during pregnancy [Unknown]
  - Premature baby [Unknown]
